FAERS Safety Report 6951717-6 (Version None)
Quarter: 2010Q3

REPORT INFORMATION
  Report Type: 
  Country: None (occurrence: None)
  Receive Date: 20100828
  Receipt Date: 20100408
  Transmission Date: 20110219
  Serious: No
  Sender: FDA-Public Use
  Company Number: US-ABBOTT-10P-163-0637253-00

PATIENT
  Sex: Female
  Weight: 110.32 kg

DRUGS (5)
  1. NIASPAN [Suspect]
     Indication: BLOOD CHOLESTEROL INCREASED
     Dates: start: 20100408, end: 20100409
  2. NIASPAN [Suspect]
     Indication: HIGH DENSITY LIPOPROTEIN DECREASED
  3. VITAPLEX [Concomitant]
     Indication: PRODUCT USED FOR UNKNOWN INDICATION
  4. THORAZINE [Concomitant]
     Indication: PRODUCT USED FOR UNKNOWN INDICATION
  5. INVEGA [Concomitant]
     Indication: PRODUCT USED FOR UNKNOWN INDICATION

REACTIONS (1)
  - BACK PAIN [None]
